FAERS Safety Report 19755697 (Version 2)
Quarter: 2021Q4

REPORT INFORMATION
  Report Type: Spontaneous
  Country: US (occurrence: US)
  Receive Date: 20210827
  Receipt Date: 20211229
  Transmission Date: 20220303
  Serious: Yes (Other)
  Sender: FDA-Public Use
  Company Number: US-GILEAD-2021-0545324

PATIENT
  Age: 64 Year
  Sex: Male

DRUGS (43)
  1. COMPLERA [Suspect]
     Active Substance: EMTRICITABINE\RILPIVIRINE HYDROCHLORIDE\TENOFOVIR DISOPROXIL FUMARATE
     Indication: HIV infection
     Dosage: UNK
     Route: 048
     Dates: start: 2006, end: 2016
  2. ATRIPLA [Suspect]
     Active Substance: EFAVIRENZ\EMTRICITABINE\TENOFOVIR DISOPROXIL FUMARATE
     Indication: HIV infection
     Dosage: UNK
     Route: 048
     Dates: start: 2006
  3. ATRIPLA [Suspect]
     Active Substance: EFAVIRENZ\EMTRICITABINE\TENOFOVIR DISOPROXIL FUMARATE
     Dosage: UNK
     Route: 065
     Dates: start: 2007, end: 201505
  4. TRUVADA [Suspect]
     Active Substance: EMTRICITABINE\TENOFOVIR DISOPROXIL FUMARATE
     Indication: HIV infection
     Dosage: UNK
     Route: 065
     Dates: start: 200602
  5. ODEFSEY [Concomitant]
     Active Substance: EMTRICITABINE\RILPIVIRINE HYDROCHLORIDE\TENOFOVIR ALAFENAMIDE FUMARATE
  6. SUSTIVA [Concomitant]
     Active Substance: EFAVIRENZ
  7. FLUTICASONE PROPIONATE [Concomitant]
     Active Substance: FLUTICASONE PROPIONATE
  8. TEMAZEPAM [Concomitant]
     Active Substance: TEMAZEPAM
  9. TESTOSTERONE [Concomitant]
     Active Substance: TESTOSTERONE
  10. DOXYCYCLINE [Concomitant]
     Active Substance: DOXYCYCLINE
  11. AZITHROMYCIN [Concomitant]
     Active Substance: AZITHROMYCIN
  12. BACTRIM [Concomitant]
     Active Substance: SULFAMETHOXAZOLE\TRIMETHOPRIM
  13. VALTREX [Concomitant]
     Active Substance: VALACYCLOVIR HYDROCHLORIDE
  14. PREDNISOLONE [Concomitant]
     Active Substance: PREDNISOLONE
  15. HYDROCODONE [Concomitant]
     Active Substance: HYDROCODONE
  16. METOCLOPRAMIDE [Concomitant]
     Active Substance: METOCLOPRAMIDE
  17. ATROPINE\DIPHENOXYLATE [Concomitant]
     Active Substance: ATROPINE\DIPHENOXYLATE
  18. CIPROFLOXACIN [Concomitant]
     Active Substance: CIPROFLOXACIN
  19. MUCINEX [Concomitant]
     Active Substance: GUAIFENESIN
  20. ALLEGRA [Concomitant]
     Active Substance: FEXOFENADINE HYDROCHLORIDE
  21. MARINOL [Concomitant]
     Active Substance: DRONABINOL
  22. FLONASE [Concomitant]
     Active Substance: FLUTICASONE PROPIONATE
  23. LAMISIL [Concomitant]
     Active Substance: TERBINAFINE HYDROCHLORIDE
  24. LEVAQUIN [Concomitant]
     Active Substance: LEVOFLOXACIN
  25. LOSARTAN [Concomitant]
     Active Substance: LOSARTAN
  26. VANCENASE [Concomitant]
     Active Substance: BECLOMETHASONE DIPROPIONATE
  27. RITALIN [Concomitant]
     Active Substance: METHYLPHENIDATE HYDROCHLORIDE
  28. LISINOPRIL [Concomitant]
     Active Substance: LISINOPRIL
  29. CITALOPRAM [Concomitant]
     Active Substance: CITALOPRAM HYDROBROMIDE
  30. CLINDAMYCIN [Concomitant]
     Active Substance: CLINDAMYCIN
  31. METRONIDAZOLE [Concomitant]
     Active Substance: METRONIDAZOLE
  32. ATORVASTATIN [Concomitant]
     Active Substance: ATORVASTATIN
  33. ALBUTEROL SULFATE [Concomitant]
     Active Substance: ALBUTEROL SULFATE
  34. FINASTERIDE [Concomitant]
     Active Substance: FINASTERIDE
  35. BACLOFEN [Concomitant]
     Active Substance: BACLOFEN
  36. METHYLPREDNISOLONE [Concomitant]
     Active Substance: METHYLPREDNISOLONE
  37. ONDANSETRON [Concomitant]
     Active Substance: ONDANSETRON
  38. TRAZODONE [Concomitant]
     Active Substance: TRAZODONE HYDROCHLORIDE
  39. METHYLPHENIDATE [Concomitant]
     Active Substance: METHYLPHENIDATE
  40. LEVAQUIN [Concomitant]
     Active Substance: LEVOFLOXACIN
  41. ZOLPIDEM [Concomitant]
     Active Substance: ZOLPIDEM TARTRATE
  42. OXANDROLONE [Concomitant]
     Active Substance: OXANDROLONE
  43. VIAGRA [Concomitant]
     Active Substance: SILDENAFIL CITRATE

REACTIONS (11)
  - Chronic kidney disease [Not Recovered/Not Resolved]
  - Renal failure [Not Recovered/Not Resolved]
  - Gout [Not Recovered/Not Resolved]
  - Erectile dysfunction [Not Recovered/Not Resolved]
  - Anaemia [Not Recovered/Not Resolved]
  - Emotional distress [Not Recovered/Not Resolved]
  - Anhedonia [Not Recovered/Not Resolved]
  - Hypertension [Not Recovered/Not Resolved]
  - Pain [Not Recovered/Not Resolved]
  - Anxiety [Not Recovered/Not Resolved]
  - Blood creatinine increased [Not Recovered/Not Resolved]

NARRATIVE: CASE EVENT DATE: 20150501
